FAERS Safety Report 19482276 (Version 1)
Quarter: 2021Q3

REPORT INFORMATION
  Report Type: Spontaneous
  Country: US (occurrence: US)
  Receive Date: 20210701
  Receipt Date: 20210701
  Transmission Date: 20211014
  Serious: No
  Sender: FDA-Public Use
  Company Number: US-PFIZER INC-2021364325

PATIENT
  Age: 55 Year
  Sex: Female
  Weight: 74.39 kg

DRUGS (1)
  1. PRISTIQ EXTENDED?RELEASE [Suspect]
     Active Substance: DESVENLAFAXINE SUCCINATE
     Indication: DEPRESSION
     Dosage: 50 MG, 1X/DAY (IN MORNING)
     Dates: start: 2020, end: 20210329

REACTIONS (5)
  - Paraesthesia [Unknown]
  - Electric shock sensation [Unknown]
  - Crying [Unknown]
  - Withdrawal syndrome [Unknown]
  - Weight increased [Unknown]
